FAERS Safety Report 24956158 (Version 1)
Quarter: 2025Q1

REPORT INFORMATION
  Report Type: Report from Study
  Country: GB (occurrence: GB)
  Receive Date: 20250211
  Receipt Date: 20250211
  Transmission Date: 20250408
  Serious: Yes (Hospitalization)
  Sender: SAMSUNG BIOEPIS
  Company Number: GB-SAMSUNG BIOEPIS-SB-2025-04686

PATIENT
  Age: 78 Year
  Sex: Male

DRUGS (1)
  1. IMRALDI [Suspect]
     Active Substance: ADALIMUMAB
     Indication: Ankylosing spondylitis
     Dosage: 40 MG/0.8 ML;
     Route: 058

REACTIONS (6)
  - Chronic obstructive pulmonary disease [Not Recovered/Not Resolved]
  - Fall [Not Recovered/Not Resolved]
  - Fluid retention [Not Recovered/Not Resolved]
  - Hypotension [Not Recovered/Not Resolved]
  - Influenza [Not Recovered/Not Resolved]
  - Urinary tract infection [Not Recovered/Not Resolved]
